FAERS Safety Report 8174829-0 (Version None)
Quarter: 2012Q1

REPORT INFORMATION
  Report Type: 
  Country: None (occurrence: None)
  Receive Date: 20120229
  Receipt Date: 20120224
  Transmission Date: 20120608
  Serious: Yes (Hospitalization)
  Sender: FDA-Public Use
  Company Number: DK-ABBOTT-12P-044-0908723-00

PATIENT
  Sex: Male

DRUGS (1)
  1. MARINOL [Suspect]
     Indication: DIABETIC NEUROPATHY
     Dosage: 2-3 X 2 DAILY
     Route: 048
     Dates: start: 20101124

REACTIONS (3)
  - AFFECTIVE DISORDER [None]
  - INTENTIONAL OVERDOSE [None]
  - AGGRESSION [None]
